FAERS Safety Report 15608657 (Version 4)
Quarter: 2018Q4

REPORT INFORMATION
  Report Type: Spontaneous
  Country: CA (occurrence: CA)
  Receive Date: 20181112
  Receipt Date: 20181206
  Transmission Date: 20190205
  Serious: Yes (Other)
  Sender: FDA-Public Use
  Company Number: CA-PFIZER INC-2018418512

PATIENT
  Age: 69 Year
  Sex: Female

DRUGS (26)
  1. SPIRIVA [Concomitant]
     Active Substance: TIOTROPIUM BROMIDE MONOHYDRATE
     Dosage: UNK
  2. REVATIO [Suspect]
     Active Substance: SILDENAFIL CITRATE
     Dosage: 60 UNK, UNK
  3. VITAMIN D [Concomitant]
     Active Substance: CHOLECALCIFEROL
     Dosage: UNK
  4. SENOKOT [Concomitant]
     Active Substance: SENNOSIDES
     Dosage: UNK
  5. UPTRAVI [Concomitant]
     Active Substance: SELEXIPAG
     Dosage: UNK
  6. LASIX [Concomitant]
     Active Substance: FUROSEMIDE
     Dosage: UNK
  7. REVATIO [Suspect]
     Active Substance: SILDENAFIL CITRATE
     Dosage: 20 MG, UNK
     Route: 048
     Dates: start: 20160817
  8. ADVAIR HFA [Concomitant]
     Active Substance: FLUTICASONE PROPIONATE\SALMETEROL XINAFOATE
     Dosage: UNK
  9. METOLAZONE. [Concomitant]
     Active Substance: METOLAZONE
     Dosage: UNK
  10. WARFARIN [Concomitant]
     Active Substance: WARFARIN
     Dosage: UNK
  11. LIPITOR [Concomitant]
     Active Substance: ATORVASTATIN CALCIUM
     Dosage: UNK
  12. RABEPRAZOLE [Concomitant]
     Active Substance: RABEPRAZOLE
     Dosage: UNK
  13. SPIRONOLACTONE. [Concomitant]
     Active Substance: SPIRONOLACTONE
     Dosage: UNK
  14. VOLIBRIS [Concomitant]
     Active Substance: AMBRISENTAN
     Dosage: UNK
  15. FE [Concomitant]
     Active Substance: IRON
     Dosage: UNK
  16. ALLOPURINOL. [Concomitant]
     Active Substance: ALLOPURINOL
     Dosage: UNK
  17. DIOVAN [Concomitant]
     Active Substance: VALSARTAN
     Dosage: UNK
  18. REVATIO [Suspect]
     Active Substance: SILDENAFIL CITRATE
     Dosage: 20 MG, DAILY
     Route: 048
     Dates: start: 20160919
  19. MULTI VIT [Concomitant]
     Dosage: UNK
  20. WELLBUTRIN [Concomitant]
     Active Substance: BUPROPION HYDROCHLORIDE
     Dosage: UNK
  21. TYLENOL [Concomitant]
     Active Substance: ACETAMINOPHEN
     Dosage: UNK
  22. REVATIO [Suspect]
     Active Substance: SILDENAFIL CITRATE
     Indication: PULMONARY HYPERTENSION
     Dosage: 20 MG, UNK
     Route: 048
     Dates: start: 20140402
  23. REVATIO [Suspect]
     Active Substance: SILDENAFIL CITRATE
     Dosage: 20 MG, ONCE A DAY (OD)
     Route: 048
  24. REVATIO [Suspect]
     Active Substance: SILDENAFIL CITRATE
     Dosage: 40 MG 2X/DAY NEXT FEW DAYS THEN 40 MG 3X/DAY
     Route: 048
  25. ESTROGEN [Concomitant]
     Active Substance: ESTROGENS
     Dosage: UNK
  26. VIT K1 [Concomitant]
     Active Substance: PHYTONADIONE
     Dosage: UNK

REACTIONS (12)
  - Pain [Not Recovered/Not Resolved]
  - Peripheral swelling [Unknown]
  - Pain in jaw [Not Recovered/Not Resolved]
  - Dyspnoea [Not Recovered/Not Resolved]
  - Chest pain [Unknown]
  - Off label use [Unknown]
  - Toothache [Unknown]
  - Ascites [Not Recovered/Not Resolved]
  - Oral pain [Recovering/Resolving]
  - Gout [Not Recovered/Not Resolved]
  - Constipation [Not Recovered/Not Resolved]
  - Fatigue [Not Recovered/Not Resolved]

NARRATIVE: CASE EVENT DATE: 20181008
